FAERS Safety Report 21690405 (Version 7)
Quarter: 2023Q1

REPORT INFORMATION
  Report Type: Report from Study
  Country: US (occurrence: US)
  Receive Date: 20221206
  Receipt Date: 20230217
  Transmission Date: 20230418
  Serious: No
  Sender: FDA-Public Use
  Company Number: US-002147023-NVSC2022US281859

PATIENT
  Sex: Female

DRUGS (2)
  1. COSENTYX [Suspect]
     Active Substance: SECUKINUMAB
     Indication: Psoriasis
     Dosage: UNK
     Route: 065
  2. COSENTYX [Suspect]
     Active Substance: SECUKINUMAB
     Dosage: 300 MG, QMO
     Route: 058

REACTIONS (13)
  - Psoriasis [Unknown]
  - Skin plaque [Recovering/Resolving]
  - Intertrigo [Unknown]
  - Hidradenitis [Unknown]
  - Condition aggravated [Unknown]
  - Vulvovaginal erythema [Unknown]
  - Anal erythema [Unknown]
  - Skin erosion [Unknown]
  - Vulvovaginal pruritus [Unknown]
  - Anal pruritus [Unknown]
  - Stress [Unknown]
  - Off label use [Unknown]
  - Product prescribing error [Unknown]
